FAERS Safety Report 5460770-0 (Version None)
Quarter: 2007Q3

REPORT INFORMATION
  Report Type: 
  Country: None (occurrence: None)
  Receive Date: 20070918
  Receipt Date: 20070903
  Transmission Date: 20080115
  Serious: Yes (Hospitalization)
  Sender: FDA-Public Use
  Company Number: 159094ISR

PATIENT
  Age: 82 Year
  Sex: Male

DRUGS (2)
  1. CARBOPLATIN [Suspect]
     Dates: start: 20070416
  2. ETOPOSIDE [Concomitant]

REACTIONS (5)
  - BLOOD CALCIUM DECREASED [None]
  - CEREBELLAR ATROPHY [None]
  - CEREBRAL ATROPHY [None]
  - CEREBRAL ISCHAEMIA [None]
  - CONVULSION [None]
